FAERS Safety Report 16898910 (Version 1)
Quarter: 2019Q4

REPORT INFORMATION
  Report Type: Spontaneous
  Country: US (occurrence: US)
  Receive Date: 20191009
  Receipt Date: 20191009
  Transmission Date: 20200122
  Serious: No
  Sender: FDA-Public Use
  Company Number: US-PFIZER INC-2019430627

PATIENT
  Sex: Female

DRUGS (8)
  1. NEURONTIN [Concomitant]
     Active Substance: GABAPENTIN
     Indication: DIABETIC NEUROPATHY
     Dosage: UNK
  2. LIPITOR [Suspect]
     Active Substance: ATORVASTATIN CALCIUM
     Dosage: UNK
  3. BENICAR [Concomitant]
     Active Substance: OLMESARTAN MEDOXOMIL
     Indication: SEIZURE
     Dosage: 40 MG, DAILY
  4. REPATHA [Concomitant]
     Active Substance: EVOLOCUMAB
     Indication: SEIZURE
     Dosage: UNK
  5. CORGARD [Concomitant]
     Active Substance: NADOLOL
     Indication: SEIZURE
     Dosage: 40 MG, 2X/DAY
  6. LAMICTAL [Concomitant]
     Active Substance: LAMOTRIGINE
     Indication: SEIZURE
     Dosage: 500 MG, DAILY (3 TABLETS (EVERY MORNING) AND 2 TABLETS (EVERY BEDTIME))
  7. KEPPRA [Concomitant]
     Active Substance: LEVETIRACETAM
     Indication: SEIZURE
     Dosage: 1.5 DF, 2X/DAY
  8. RANEXA [Concomitant]
     Active Substance: RANOLAZINE
     Indication: SEIZURE
     Dosage: 1000 MG, 2X/DAY
     Dates: start: 20190521

REACTIONS (1)
  - Myalgia [Unknown]
